FAERS Safety Report 22296168 (Version 2)
Quarter: 2023Q2

REPORT INFORMATION
  Report Type: Spontaneous
  Country: US (occurrence: US)
  Receive Date: 20230508
  Receipt Date: 20230511
  Transmission Date: 20230722
  Serious: Yes (Other)
  Sender: FDA-Public Use
  Company Number: US-ORGANON-O2303USA001630

PATIENT
  Age: 23 Year
  Sex: Female
  Weight: 173 kg

DRUGS (1)
  1. NEXPLANON [Suspect]
     Active Substance: ETONOGESTREL
     Indication: Contraception
     Dosage: 1 DOSAGE FORM (1 IMPLANT) IN LEFT UPPER ARM  FOR EVERY 3 YEARS
     Route: 058
     Dates: start: 20201111, end: 20230324

REACTIONS (7)
  - Device dislocation [Recovered/Resolved]
  - Pain [Unknown]
  - Contusion [Unknown]
  - Swelling [Unknown]
  - Complication of device removal [Recovered/Resolved]
  - Device breakage [Recovered/Resolved]
  - Device placement issue [Recovered/Resolved]

NARRATIVE: CASE EVENT DATE: 20201111
